FAERS Safety Report 9531179 (Version 2)
Quarter: 2013Q3

REPORT INFORMATION
  Report Type: Spontaneous
  Country: ES (occurrence: ES)
  Receive Date: 20130918
  Receipt Date: 20130918
  Transmission Date: 20140515
  Serious: Yes (Hospitalization, Other)
  Sender: FDA-Public Use
  Company Number: ES-TEVA-429848ISR

PATIENT
  Age: 75 Year
  Sex: Female

DRUGS (4)
  1. AZILECT [Suspect]
     Indication: PARKINSON^S DISEASE
     Dosage: 1 MILLIGRAM DAILY;
     Route: 048
     Dates: start: 2008
  2. PAROXETINE [Interacting]
     Dosage: 10 MILLIGRAM DAILY;
  3. STALEVO [Concomitant]
  4. MIRAPEXIN/ PRAMIPEXOL [Concomitant]

REACTIONS (2)
  - Serotonin syndrome [Recovered/Resolved]
  - Drug interaction [Recovered/Resolved]
